FAERS Safety Report 6289589-8 (Version None)
Quarter: 2009Q3

REPORT INFORMATION
  Report Type: 
  Country: None (occurrence: None)
  Receive Date: 20090728
  Receipt Date: 20090728
  Transmission Date: 20100115
  Serious: Yes (Other)
  Sender: FDA-Public Use
  Company Number: None

PATIENT
  Age: 35 Year
  Sex: Female
  Weight: 69.4003 kg

DRUGS (4)
  1. LAMIVUDINE [Suspect]
     Indication: HUMAN IMMUNODEFICIENCY VIRUS TRANSMISSION
     Dosage: 450MG BID PO
     Route: 048
     Dates: start: 20090724, end: 20090731
  2. LAMIVUDINE [Suspect]
     Indication: PROPHYLAXIS
     Dosage: 450MG BID PO
     Route: 048
     Dates: start: 20090724, end: 20090731
  3. ZIDOVUDINE [Suspect]
     Indication: HUMAN IMMUNODEFICIENCY VIRUS TRANSMISSION
     Dates: start: 20090724, end: 20090731
  4. ZIDOVUDINE [Suspect]
     Indication: PROPHYLAXIS
     Dates: start: 20090724, end: 20090731

REACTIONS (5)
  - CONFUSIONAL STATE [None]
  - DECREASED APPETITE [None]
  - DIARRHOEA [None]
  - FATIGUE [None]
  - NAUSEA [None]
